FAERS Safety Report 12040279 (Version 54)
Quarter: 2025Q1

REPORT INFORMATION
  Report Type: Report from Study
  Country: BR (occurrence: BR)
  Receive Date: 20160208
  Receipt Date: 20250228
  Transmission Date: 20250409
  Serious: Yes (Hospitalization, Disabling, Other)
  Sender: GLAXOSMITHKLINE
  Company Number: BR-GLAXOSMITHKLINE INC.-BR2015GSK160212

PATIENT

DRUGS (16)
  1. BELIMUMAB [Suspect]
     Active Substance: BELIMUMAB
     Indication: Systemic lupus erythematosus
     Route: 042
     Dates: start: 20150318
  2. BELIMUMAB [Suspect]
     Active Substance: BELIMUMAB
     Dosage: UNK UNK, Q4W
     Route: 042
     Dates: start: 20150401
  3. BELIMUMAB [Suspect]
     Active Substance: BELIMUMAB
     Route: 042
     Dates: start: 20170811
  4. BELIMUMAB [Suspect]
     Active Substance: BELIMUMAB
     Route: 042
     Dates: start: 20170906
  5. BELIMUMAB [Suspect]
     Active Substance: BELIMUMAB
     Dates: start: 20171006
  6. DAPSONE [Concomitant]
     Active Substance: DAPSONE
     Indication: Product used for unknown indication
  7. PREDNISOLONE [Concomitant]
     Active Substance: PREDNISOLONE
     Indication: Product used for unknown indication
  8. CARVEDILOL [Concomitant]
     Active Substance: CARVEDILOL
     Indication: Product used for unknown indication
  9. CLOPIDOGREL [Concomitant]
     Active Substance: CLOPIDOGREL BISULFATE
     Indication: Product used for unknown indication
  10. SIMVASTATIN [Concomitant]
     Active Substance: SIMVASTATIN
     Indication: Product used for unknown indication
  11. HYDROXYCHLOROQUINE SULFATE [Concomitant]
     Active Substance: HYDROXYCHLOROQUINE SULFATE
     Indication: Product used for unknown indication
  12. CHLOROQUINE DIPHOSPHATE [Concomitant]
     Active Substance: CHLOROQUINE PHOSPHATE
     Indication: Systemic lupus erythematosus
  13. METHOTREXATE [Concomitant]
     Active Substance: METHOTREXATE
     Indication: Systemic lupus erythematosus
  14. COVID-19 VACCINE [Concomitant]
     Indication: Prophylaxis
  15. VASTAREL [Concomitant]
     Active Substance: TRIMETAZIDINE DIHYDROCHLORIDE
     Indication: Product used for unknown indication
  16. KETOCONAZOLE [Concomitant]
     Active Substance: KETOCONAZOLE
     Indication: Product used for unknown indication

REACTIONS (21)
  - Myocardial infarction [Unknown]
  - Urinary tract infection [Unknown]
  - Systemic lupus erythematosus [Not Recovered/Not Resolved]
  - Nodule [Unknown]
  - Limb discomfort [Recovered/Resolved with Sequelae]
  - Diabetes mellitus [Unknown]
  - Autoimmune disorder [Unknown]
  - Vitamin D deficiency [Unknown]
  - Malaise [Unknown]
  - Blood pressure decreased [Unknown]
  - Movement disorder [Unknown]
  - Skin disorder [Not Recovered/Not Resolved]
  - Ill-defined disorder [Unknown]
  - Nasopharyngitis [Recovered/Resolved]
  - Condition aggravated [Unknown]
  - Product dose omission issue [Unknown]
  - Inappropriate schedule of product administration [Unknown]
  - Circumstance or information capable of leading to medication error [Unknown]
  - Product supply issue [Unknown]
  - Extra dose administered [Unknown]
  - Drug ineffective [Unknown]

NARRATIVE: CASE EVENT DATE: 20201127
